FAERS Safety Report 10152559 (Version 3)
Quarter: 2014Q4

REPORT INFORMATION
  Report Type: Spontaneous
  Country: CN (occurrence: CN)
  Receive Date: 20140505
  Receipt Date: 20141022
  Transmission Date: 20150528
  Serious: Yes (Hospitalization, Other)
  Sender: FDA-Public Use
  Company Number: PHHY2014CN052805

PATIENT
  Age: 76 Year
  Sex: Male

DRUGS (4)
  1. LESCOL [Suspect]
     Active Substance: FLUVASTATIN SODIUM
     Indication: THROMBOTIC CEREBRAL INFARCTION
     Dosage: 80 MG, QD (ONE PIECE DAILY)
     Route: 048
     Dates: start: 20140101, end: 20140430
  2. DIOVAN [Concomitant]
     Active Substance: VALSARTAN
     Dosage: UNK
  3. LESCOL [Suspect]
     Active Substance: FLUVASTATIN SODIUM
     Indication: ARTERIOSCLEROSIS
  4. BEZAFIBRAT [Concomitant]
     Dosage: UNK

REACTIONS (4)
  - Blood creatine phosphokinase increased [Unknown]
  - Aspartate aminotransferase increased [Unknown]
  - Alanine aminotransferase increased [Unknown]
  - Myalgia [Unknown]

NARRATIVE: CASE EVENT DATE: 20140430
